FAERS Safety Report 4851436-6 (Version None)
Quarter: 2005Q4

REPORT INFORMATION
  Report Type: 
  Country: None (occurrence: None)
  Receive Date: 20051212
  Receipt Date: 20051018
  Transmission Date: 20060501
  Serious: Yes (Hospitalization, Other)
  Sender: FDA-Public Use
  Company Number: PHBS2005AT15251

PATIENT

DRUGS (2)
  1. ZOMETA [Suspect]
     Indication: LYMPHOPLASMACYTOID LYMPHOMA/IMMUNOCYTOMA
     Dosage: 4 MG
     Route: 065
     Dates: start: 20021128
  2. VOLTAREN [Concomitant]
     Dosage: 100 MG/D
     Route: 065

REACTIONS (3)
  - MANDIBULECTOMY [None]
  - OSTEONECROSIS [None]
  - TOOTH EXTRACTION [None]
